FAERS Safety Report 9919994 (Version 2)
Quarter: 2014Q1

REPORT INFORMATION
  Report Type: Spontaneous
  Country: JP (occurrence: JP)
  Receive Date: 20140224
  Receipt Date: 20140224
  Transmission Date: 20141002
  Serious: Yes (Death)
  Sender: FDA-Public Use
  Company Number: PHHY2014JP011994

PATIENT
  Age: 78 Year
  Sex: Male

DRUGS (5)
  1. NEORAL [Suspect]
     Indication: APLASTIC ANAEMIA
     Dosage: 100 MG, DAILY
     Route: 048
     Dates: start: 20131121, end: 20140123
  2. PREDONINE [Concomitant]
     Dosage: 10 MG, UNK
     Route: 048
     Dates: start: 20131121, end: 20140123
  3. PRIMOBOLAN [Concomitant]
     Dosage: 20 MG, UNK
     Route: 048
     Dates: start: 20130122, end: 20140123
  4. CORTICOSTEROIDS [Concomitant]
     Indication: APLASTIC ANAEMIA
     Dosage: UNK UKN, UNK
     Dates: start: 20131121
  5. HORMONES [Concomitant]
     Dosage: UNK UKN, UNK

REACTIONS (3)
  - General physical health deterioration [Fatal]
  - Renal disorder [Fatal]
  - Pyrexia [Unknown]
